FAERS Safety Report 10810464 (Version 1)
Quarter: 2015Q1

REPORT INFORMATION
  Report Type: Report from Study
  Country: US (occurrence: US)
  Receive Date: 20150217
  Receipt Date: 20150217
  Transmission Date: 20150721
  Serious: Yes (Other)
  Sender: FDA-Public Use
  Company Number: US-ABBVIE-14K-163-1269492-00

PATIENT
  Age: 52 Year
  Sex: Female

DRUGS (3)
  1. HUMIRA [Suspect]
     Active Substance: ADALIMUMAB
     Dates: start: 20140711, end: 20140711
  2. HUMIRA [Suspect]
     Active Substance: ADALIMUMAB
     Indication: CROHN^S DISEASE
     Dates: start: 20140627, end: 20140627
  3. HUMIRA [Suspect]
     Active Substance: ADALIMUMAB
     Dates: start: 20140820

REACTIONS (7)
  - Malaise [Unknown]
  - Incorrect dose administered [Unknown]
  - Groin pain [Not Recovered/Not Resolved]
  - Crohn^s disease [Unknown]
  - Mobility decreased [Not Recovered/Not Resolved]
  - Osteonecrosis [Not Recovered/Not Resolved]
  - Femur fracture [Not Recovered/Not Resolved]

NARRATIVE: CASE EVENT DATE: 201407
